FAERS Safety Report 6683376-4 (Version None)
Quarter: 2010Q2

REPORT INFORMATION
  Report Type: 
  Country: None (occurrence: None)
  Receive Date: 20100415
  Receipt Date: 20100407
  Transmission Date: 20101027
  Serious: Yes (Death)
  Sender: FDA-Public Use
  Company Number: JP-BAXTER-2010BH009608

PATIENT
  Age: 78 Year
  Sex: Female

DRUGS (2)
  1. ENDOXAN BAXTER [Suspect]
     Indication: VASCULITIS
     Route: 065
  2. PREDNISOLONE [Suspect]
     Indication: VASCULITIS
     Route: 065

REACTIONS (3)
  - BRONCHOPULMONARY ASPERGILLOSIS [None]
  - CYTOMEGALOVIRUS COLITIS [None]
  - PNEUMONIA CYTOMEGALOVIRAL [None]
